FAERS Safety Report 7190646-2 (Version None)
Quarter: 2010Q4

REPORT INFORMATION
  Report Type: 
  Country: None (occurrence: None)
  Receive Date: 20101221
  Receipt Date: 20101221
  Transmission Date: 20110411
  Serious: Yes (Death)
  Sender: FDA-Public Use
  Company Number: None

PATIENT
  Age: 56 Year
  Sex: Male
  Weight: 47.6277 kg

DRUGS (1)
  1. PROPOXYPHENE HYDROCHLORIDE [Suspect]

REACTIONS (1)
  - MYOCARDIAL INFARCTION [None]
